FAERS Safety Report 19820538 (Version 1)
Quarter: 2021Q3

REPORT INFORMATION
  Report Type: Spontaneous
  Country: US (occurrence: US)
  Receive Date: 20210910
  Receipt Date: 20210910
  Transmission Date: 20211014
  Serious: Yes (Hospitalization)
  Sender: FDA-Public Use
  Company Number: None

PATIENT
  Age: 52 Year
  Sex: Female

DRUGS (1)
  1. TASIGNA [Suspect]
     Active Substance: NILOTINIB
     Indication: CHRONIC MYELOID LEUKAEMIA
     Dosage: ?          OTHER FREQUENCY:2CAPS 2X DAILY ;?
     Route: 048
     Dates: start: 20191010

REACTIONS (3)
  - Rosacea [None]
  - Pneumonia [None]
  - Coronavirus infection [None]

NARRATIVE: CASE EVENT DATE: 20210804
